FAERS Safety Report 9490914 (Version 1)
Quarter: 2013Q3

REPORT INFORMATION
  Report Type: Spontaneous
  Country: US (occurrence: US)
  Receive Date: 20130830
  Receipt Date: 20130830
  Transmission Date: 20140515
  Serious: Yes (Other)
  Sender: FDA-Public Use
  Company Number: US-SUN PHARMACEUTICAL INDUSTRIES LTD-2013SUN04544

PATIENT
  Age: 45 Year
  Sex: Male

DRUGS (7)
  1. QUETIAPINE FUMARATE 25MG TABLETS [Interacting]
     Dosage: 25 MG, QD
     Route: 065
  2. QUETIAPINE FUMARATE 25MG TABLETS [Interacting]
     Dosage: 100 MG, QD
     Route: 065
  3. QUETIAPINE FUMARATE 25MG TABLETS [Interacting]
     Dosage: UNK
  4. PAROXETINE HYDROCHLORIDE [Interacting]
     Indication: DEPRESSION
     Dosage: 12.5 MG, QD
     Route: 065
  5. PAROXETINE HYDROCHLORIDE [Interacting]
     Dosage: 25 MG, QD
     Route: 065
  6. PAROXETINE HYDROCHLORIDE [Interacting]
     Dosage: 37.5 MG, QD
     Route: 065
  7. ZOLPIDEM TARTRATE [Suspect]
     Indication: DEPRESSION
     Dosage: 10 MG AT NIGHT
     Route: 065

REACTIONS (4)
  - Drug interaction [Unknown]
  - Amnesia [Unknown]
  - Psychotic behaviour [Unknown]
  - Homicide [Unknown]
